FAERS Safety Report 17745230 (Version 4)
Quarter: 2024Q1

REPORT INFORMATION
  Report Type: Spontaneous
  Country: RO (occurrence: RO)
  Receive Date: 20200504
  Receipt Date: 20240117
  Transmission Date: 20240410
  Serious: Yes (Hospitalization, Disabling, Other)
  Sender: FDA-Public Use
  Company Number: RO-002147023-NVSC2020RO104140

PATIENT
  Age: 61 Year
  Sex: Male

DRUGS (25)
  1. ARIPIPRAZOLE [Suspect]
     Active Substance: ARIPIPRAZOLE
     Indication: Depression
     Dosage: 7 MILLIGRAM, ONCE A DAY
     Route: 048
  2. ARIPIPRAZOLE [Suspect]
     Active Substance: ARIPIPRAZOLE
     Indication: Dementia
     Dosage: 10 MILLIGRAM, ONCE A DAY
     Route: 048
     Dates: end: 20191107
  3. ARIPIPRAZOLE [Suspect]
     Active Substance: ARIPIPRAZOLE
     Indication: Abnormal behaviour
  4. ESCITALOPRAM [Suspect]
     Active Substance: ESCITALOPRAM OXALATE
     Indication: Major depression
     Dosage: 10 MILLIGRAM, ONCE A DAY
     Route: 065
  5. MEMANTINE [Suspect]
     Active Substance: MEMANTINE
     Indication: Depression
     Dosage: 20 MILLIGRAM, ONCE A DAY
     Route: 065
  6. MEMANTINE [Suspect]
     Active Substance: MEMANTINE
     Indication: Dementia
  7. MEMANTINE [Suspect]
     Active Substance: MEMANTINE
     Indication: Personality change
  8. MIRTAZAPINE [Suspect]
     Active Substance: MIRTAZAPINE
     Indication: Depression
     Dosage: 15 MILLIGRAM, ONCE A DAY
     Route: 065
  9. MIRTAZAPINE [Suspect]
     Active Substance: MIRTAZAPINE
     Indication: Dementia
  10. VALPROATE SODIUM [Suspect]
     Active Substance: VALPROATE SODIUM
     Indication: Depression
     Dosage: 1000 MILLIGRAM, ONCE A DAY
     Route: 065
  11. VALPROATE SODIUM [Suspect]
     Active Substance: VALPROATE SODIUM
     Indication: Dementia
  12. ARIPIPRAZOLE [Suspect]
     Active Substance: ARIPIPRAZOLE
     Indication: Dementia
     Dosage: 7 MILLIGRAM, ONCE A DAY
     Route: 048
     Dates: start: 20191107, end: 20191112
  13. ARIPIPRAZOLE [Suspect]
     Active Substance: ARIPIPRAZOLE
     Indication: Disease progression
  14. CLONAZEPAM [Suspect]
     Active Substance: CLONAZEPAM
     Indication: Major depression
     Dosage: 1 MILLIGRAM, ONCE A DAY
     Route: 065
  15. DONEPEZIL [Suspect]
     Active Substance: DONEPEZIL
     Indication: Depression
     Dosage: 10 MILLIGRAM, ONCE A DAY
     Route: 065
  16. DONEPEZIL [Suspect]
     Active Substance: DONEPEZIL
     Indication: Dementia
  17. DONEPEZIL [Suspect]
     Active Substance: DONEPEZIL
     Indication: Personality change
  18. TRAZODONE [Suspect]
     Active Substance: TRAZODONE HYDROCHLORIDE
     Indication: Dementia
     Dosage: 100 MILLIGRAM, ONCE A DAY
     Route: 065
  19. TRAZODONE [Suspect]
     Active Substance: TRAZODONE HYDROCHLORIDE
     Indication: Major depression
  20. TRAZODONE [Suspect]
     Active Substance: TRAZODONE HYDROCHLORIDE
     Indication: Personality change
  21. MEMANTINE [Concomitant]
     Active Substance: MEMANTINE
     Indication: Frontotemporal dementia
     Dosage: 20 MILLIGRAM, ONCE A DAY
     Route: 065
     Dates: start: 2018
  22. DONEPEZIL [Concomitant]
     Active Substance: DONEPEZIL
     Indication: Frontotemporal dementia
     Dosage: 10 MILLIGRAM, ONCE A DAY
     Route: 065
     Dates: start: 2018
  23. TRAZODONE [Concomitant]
     Active Substance: TRAZODONE HYDROCHLORIDE
     Indication: Product used for unknown indication
     Dosage: 100 MILLIGRAM, ONCE A DAY
     Route: 065
     Dates: start: 2018
  24. MIRTAZAPINE [Concomitant]
     Active Substance: MIRTAZAPINE
     Indication: Product used for unknown indication
     Dosage: 15 MILLIGRAM, ONCE A DAY
     Route: 065
     Dates: start: 2018
  25. VALPROATE SODIUM [Concomitant]
     Active Substance: VALPROATE SODIUM
     Indication: Product used for unknown indication
     Dosage: 1000 MILLIGRAM, ONCE A DAY
     Route: 065
     Dates: start: 2018

REACTIONS (11)
  - Dementia [Recovering/Resolving]
  - Condition aggravated [Recovering/Resolving]
  - Neuroleptic malignant syndrome [Recovered/Resolved]
  - Drug ineffective [Recovering/Resolving]
  - Hyperhidrosis [Recovered/Resolved]
  - Tremor [Recovered/Resolved]
  - Pyrexia [Recovered/Resolved]
  - Cogwheel rigidity [Recovered/Resolved]
  - Disinhibition [Unknown]
  - Loss of personal independence in daily activities [Unknown]
  - Treatment failure [Unknown]

NARRATIVE: CASE EVENT DATE: 20190101
